FAERS Safety Report 7159383-4 (Version None)
Quarter: 2010Q4

REPORT INFORMATION
  Report Type: 
  Country: None (occurrence: None)
  Receive Date: 20101214
  Receipt Date: 20100825
  Transmission Date: 20110411
  Serious: No
  Sender: FDA-Public Use
  Company Number: US-ASTRAZENECA-2010SE40160

PATIENT
  Age: 64 Year
  Sex: Male

DRUGS (4)
  1. CRESTOR [Suspect]
     Indication: BLOOD CHOLESTEROL INCREASED
     Route: 048
     Dates: start: 20090101, end: 20100101
  2. CRESTOR [Suspect]
     Route: 048
     Dates: start: 20100501, end: 20100801
  3. BLODD PRESSURE MEDICATION [Concomitant]
  4. CARDIAC MEDICATIONS [Concomitant]

REACTIONS (7)
  - ARTHRALGIA [None]
  - HEADACHE [None]
  - INSOMNIA [None]
  - MUSCULOSKELETAL PAIN [None]
  - MYALGIA [None]
  - NECK PAIN [None]
  - PAIN IN EXTREMITY [None]
